FAERS Safety Report 5308209-X (Version None)
Quarter: 2007Q2

REPORT INFORMATION
  Report Type: 
  Country: None (occurrence: None)
  Receive Date: 20070426
  Receipt Date: 20070419
  Transmission Date: 20071010
  Serious: Yes (Hospitalization)
  Sender: FDA-Public Use
  Company Number: ITWYE138522MAR07

PATIENT
  Age: 49 Year
  Sex: Male

DRUGS (2)
  1. ENBREL [Suspect]
     Indication: DRUG USE FOR UNKNOWN INDICATION
     Route: 058
     Dates: start: 20061001, end: 20070317
  2. ENBREL [Suspect]
     Route: 058
     Dates: start: 20070328

REACTIONS (1)
  - HERPES ZOSTER [None]
